FAERS Safety Report 9444790 (Version 1)
Quarter: 2013Q3

REPORT INFORMATION
  Report Type: Spontaneous
  Country: US (occurrence: US)
  Receive Date: 20130807
  Receipt Date: 20130807
  Transmission Date: 20140515
  Serious: No
  Sender: FDA-Public Use
  Company Number: US-009507513-1307USA007240

PATIENT
  Age: 53 Year
  Sex: Male

DRUGS (3)
  1. AZASITE [Suspect]
     Indication: LYME DISEASE
     Dosage: 2 GTT, QD
     Route: 047
     Dates: start: 20130615
  2. ROCEPHIN [Concomitant]
  3. AZITHROMYCIN [Concomitant]
     Route: 047

REACTIONS (5)
  - Vision blurred [Not Recovered/Not Resolved]
  - Dry eye [Not Recovered/Not Resolved]
  - Drug dose omission [Unknown]
  - Product quality issue [Unknown]
  - Off label use [Unknown]
